FAERS Safety Report 11301134 (Version 1)
Quarter: 2015Q3

REPORT INFORMATION
  Report Type: Spontaneous
  Country: US (occurrence: US)
  Receive Date: 20150722
  Receipt Date: 20150722
  Transmission Date: 20151125
  Serious: No
  Sender: FDA-Public Use
  Company Number: US-ELI_LILLY_AND_COMPANY-US201105001410

PATIENT
  Sex: Male

DRUGS (2)
  1. PLAVIX [Concomitant]
     Active Substance: CLOPIDOGREL BISULFATE
  2. EFFIENT [Suspect]
     Active Substance: PRASUGREL HYDROCHLORIDE
     Indication: STENT PLACEMENT
     Dosage: 10 MG, QD
     Dates: start: 20110411

REACTIONS (5)
  - Pyrexia [Unknown]
  - Influenza like illness [Not Recovered/Not Resolved]
  - Dyspnoea [Unknown]
  - Chills [Unknown]
  - Haemoglobin decreased [Unknown]
